FAERS Safety Report 8612500 (Version 3)
Quarter: 2012Q4

REPORT INFORMATION
  Report Type: 
  Country: US (occurrence: US)
  Receive Date: 20120613
  Receipt Date: 20121019
  Transmission Date: 20130627
  Serious: Yes (Other)
  Sender: FDA-Public Use
  Company Number: US-BAYER-2012-057341

PATIENT
  Age: 24 Year
  Sex: Female
  Weight: 49.89 kg

DRUGS (2)
  1. YAZ [Suspect]
     Dosage: UNK
     Dates: start: 20100607, end: 20110418
  2. HYDROCHLOROTHIAZIDE [Concomitant]
     Dosage: UNK
     Dates: start: 2011

REACTIONS (12)
  - Deep vein thrombosis [None]
  - Venous thrombosis [None]
  - Venous insufficiency [None]
  - Oedema peripheral [None]
  - Pain in extremity [None]
  - Post thrombotic syndrome [None]
  - Pain [None]
  - Injury [None]
  - General physical health deterioration [None]
  - Anxiety [None]
  - Emotional distress [None]
  - Mental disorder [None]
